FAERS Safety Report 16359924 (Version 3)
Quarter: 2024Q4

REPORT INFORMATION
  Report Type: Spontaneous
  Country: US (occurrence: US)
  Receive Date: 20190528
  Receipt Date: 20241003
  Transmission Date: 20250114
  Serious: Yes (Life-Threatening, Hospitalization, Other)
  Sender: BOEHRINGER INGELHEIM
  Company Number: US-BOEHRINGERINGELHEIM-2019-BI-023419

PATIENT
  Age: 6 Decade
  Sex: Male

DRUGS (7)
  1. MELOXICAM [Suspect]
     Active Substance: MELOXICAM
     Indication: Arthralgia
     Route: 048
  2. DESMOPRESSIN [Suspect]
     Active Substance: DESMOPRESSIN
     Indication: Urinary incontinence
     Dosage: BY MOUTH EVERY BEDTIME
     Route: 048
  3. ACETAMINOPHEN [Concomitant]
     Active Substance: ACETAMINOPHEN
     Indication: Product used for unknown indication
  4. CLOZAPINE [Concomitant]
     Active Substance: CLOZAPINE
     Indication: Schizophrenia
     Dosage: 225 MG BY MOUTH EVERY MORNING AND 400 MG BY MOUTH EVERY BEDTIME FOR A DECADE
     Route: 048
  5. CLOZAPINE [Concomitant]
     Active Substance: CLOZAPINE
     Dosage: 225 MG BY MOUTH EVERY MORNING AND 400 MG BY MOUTH EVERY BEDTIME FOR A DECADE
     Route: 048
  6. LAMOTRIGINE [Concomitant]
     Active Substance: LAMOTRIGINE
     Indication: Affective disorder
     Route: 048
  7. FLUOXETINE [Concomitant]
     Active Substance: FLUOXETINE HYDROCHLORIDE
     Indication: Affective disorder
     Route: 048

REACTIONS (5)
  - Hyponatraemia [Unknown]
  - Water intoxication [Unknown]
  - Fluid retention [Unknown]
  - Drug interaction [Unknown]
  - Generalised tonic-clonic seizure [Recovered/Resolved]
